FAERS Safety Report 12085131 (Version 3)
Quarter: 2016Q2

REPORT INFORMATION
  Report Type: Spontaneous
  Country: US (occurrence: US)
  Receive Date: 20160217
  Receipt Date: 20160504
  Transmission Date: 20160815
  Serious: Yes (Other)
  Sender: FDA-Public Use
  Company Number: US-TEVA-634852USA

PATIENT
  Age: 71 Year
  Sex: Female

DRUGS (21)
  1. FENTANYL. [Concomitant]
     Active Substance: FENTANYL
     Route: 065
  2. LIDODERM [Concomitant]
     Active Substance: LIDOCAINE
     Dosage: 5%
     Route: 065
  3. FIORICET [Concomitant]
     Active Substance: ACETAMINOPHEN\BUTALBITAL\CAFFEINE
     Dosage: 1 EVERY 6 HOURS
     Route: 065
  4. DICYCLOMINE [Concomitant]
     Active Substance: DICYCLOMINE HYDROCHLORIDE
     Dosage: 80 MILLIGRAM DAILY;
     Route: 065
  5. LOTRISONE [Concomitant]
     Active Substance: BETAMETHASONE DIPROPIONATE\CLOTRIMAZOLE
     Route: 065
  6. LOSARTAN POTASSIUM. [Concomitant]
     Active Substance: LOSARTAN POTASSIUM
     Dosage: 600 MILLIGRAM DAILY;
     Route: 065
  7. VITAMIN D3 [Concomitant]
     Active Substance: CHOLECALCIFEROL
     Dosage: 1000 IU (INTERNATIONAL UNIT) DAILY;
     Route: 065
  8. PROAIR HFA [Suspect]
     Active Substance: ALBUTEROL SULFATE
     Route: 065
  9. PAXIL [Concomitant]
     Active Substance: PAROXETINE HYDROCHLORIDE
     Dosage: 40 MILLIGRAM DAILY; 1 IN AM, 1 IN PM
  10. POTASSIUM CHLORIDE. [Concomitant]
     Active Substance: POTASSIUM CHLORIDE
     Dosage: (USP 10 % SF ORANGE,1 TSP-UP TO 3 TIMES PER DAY) AS NEEDED
     Route: 065
  11. LYRICA [Suspect]
     Active Substance: PREGABALIN
     Dosage: 400 MILLIGRAM DAILY;
     Route: 065
  12. SPIRIVA [Concomitant]
     Active Substance: TIOTROPIUM BROMIDE MONOHYDRATE
     Dosage: 18 MCG./100 MG
     Route: 065
  13. OXYBUTIN [Concomitant]
     Active Substance: OXYBUTYNIN
     Dosage: 5 MILLIGRAM DAILY; IF NEEDED NIGHT ANOTHER 3 TABLET
     Route: 048
  14. TRAZODONE [Concomitant]
     Active Substance: TRAZODONE HYDROCHLORIDE
     Dosage: 150 MILLIGRAM DAILY; AT BEDTIME
  15. PRIMIDONE. [Concomitant]
     Active Substance: PRIMIDONE
     Dosage: 1 IN AM AND 2 IN PM
     Route: 048
  16. ALBUTEROL SULFATE. [Concomitant]
     Active Substance: ALBUTEROL SULFATE
     Route: 065
  17. DICYCLOMINE [Concomitant]
     Active Substance: DICYCLOMINE HYDROCHLORIDE
     Dosage: 80 MILLIGRAM DAILY;
     Route: 065
  18. LYRICA [Suspect]
     Active Substance: PREGABALIN
     Dosage: 300 MILLIGRAM DAILY;
     Route: 065
  19. PROTONIX [Concomitant]
     Active Substance: PANTOPRAZOLE SODIUM
     Dosage: 80 MILLIGRAM DAILY; 1 IN AM, 1 IN PM
     Route: 065
  20. ALBUTEROL SULFATE. [Concomitant]
     Active Substance: ALBUTEROL SULFATE
     Dosage: 1 TO 4 TABLETS PER DAY
     Route: 065
  21. AFRIN [Concomitant]
     Active Substance: OXYMETAZOLINE
     Dosage: UP TO TWO TIMES PER DAY
     Route: 065

REACTIONS (8)
  - Fall [Not Recovered/Not Resolved]
  - Face injury [Unknown]
  - Dizziness [Unknown]
  - Hemiparesis [Unknown]
  - Dementia [Unknown]
  - Rib fracture [Unknown]
  - Parkinson^s disease [Unknown]
  - Hypoglycaemia [Unknown]

NARRATIVE: CASE EVENT DATE: 201402
